FAERS Safety Report 5218457-5 (Version None)
Quarter: 2007Q1

REPORT INFORMATION
  Report Type: 
  Country: None (occurrence: None)
  Receive Date: 20061201
  Receipt Date: 20060208
  Transmission Date: 20070707
  Serious: Yes (Life-Threatening)
  Sender: FDA-Public Use
  Company Number: SUSI-2006-00111

PATIENT
  Age: 5 Year
  Sex: Female
  Weight: 22.3 kg

DRUGS (1)
  1. ADDERALL XR 10 [Suspect]
     Indication: ATTENTION DEFICIT/HYPERACTIVITY DISORDER
     Dosage: 10 MG IN MORNING ONE DOSE,
     Dates: start: 20060117, end: 20060117

REACTIONS (1)
  - CONVULSION [None]
